FAERS Safety Report 14658507 (Version 1)
Quarter: 2018Q1

REPORT INFORMATION
  Report Type: Spontaneous
  Country: BR (occurrence: BR)
  Receive Date: 20180320
  Receipt Date: 20180320
  Transmission Date: 20180509
  Serious: No
  Sender: FDA-Public Use
  Company Number: BR-LUPIN PHARMACEUTICALS INC.-2018-01073

PATIENT
  Age: 52 Year
  Sex: Male

DRUGS (1)
  1. VORICONAZOLE. [Suspect]
     Active Substance: VORICONAZOLE
     Indication: CHROMOBLASTOMYCOSIS
     Dosage: 200 MG, BID
     Route: 065

REACTIONS (1)
  - Nail pigmentation [Unknown]
